FAERS Safety Report 4379559-9 (Version None)
Quarter: 2004Q2

REPORT INFORMATION
  Report Type: 
  Country: None (occurrence: None)
  Receive Date: 20040610
  Receipt Date: 20040601
  Transmission Date: 20050107
  Serious: Yes (Life-Threatening)
  Sender: FDA-Public Use
  Company Number: 139041USA

PATIENT
  Sex: Female

DRUGS (3)
  1. CARBAMAZEPINE [Suspect]
     Indication: ANALGESIC EFFECT
     Dates: start: 20030101, end: 20030101
  2. DIABETIC MEDICATION [Concomitant]
  3. PREDNISONE [Concomitant]

REACTIONS (1)
  - SUICIDAL IDEATION [None]
